FAERS Safety Report 7239486-6 (Version None)
Quarter: 2011Q1

REPORT INFORMATION
  Report Type: 
  Country: None (occurrence: None)
  Receive Date: 20110121
  Receipt Date: 20110118
  Transmission Date: 20110831
  Serious: Yes (Hospitalization)
  Sender: FDA-Public Use
  Company Number: US-RB-020617-11

PATIENT
  Age: 66 Year
  Sex: Male

DRUGS (1)
  1. SUBOXONE [Suspect]
     Indication: PRODUCT USED FOR UNKNOWN INDICATION
     Dosage: DOSING INFORMATION UNKNOWN
     Route: 065

REACTIONS (13)
  - MICTURITION DISORDER [None]
  - CARDIAC DISORDER [None]
  - EUPHORIC MOOD [None]
  - INTENTIONAL DRUG MISUSE [None]
  - IMPAIRED GASTRIC EMPTYING [None]
  - ASTHENIA [None]
  - DECREASED APPETITE [None]
  - BACK DISORDER [None]
  - POLYP [None]
  - TESTICULAR DISORDER [None]
  - CONSTIPATION [None]
  - DIARRHOEA [None]
  - INSOMNIA [None]
